FAERS Safety Report 4596345-5 (Version None)
Quarter: 2005Q1

REPORT INFORMATION
  Report Type: 
  Country: None (occurrence: None)
  Receive Date: 20050225
  Receipt Date: 20050211
  Transmission Date: 20050727
  Serious: No
  Sender: FDA-Public Use
  Company Number: 2005CG00331

PATIENT
  Age: 88 Year
  Sex: Male
  Weight: 70 kg

DRUGS (1)
  1. XYLOCAINE [Suspect]
     Indication: LOCAL ANAESTHESIA
     Dosage: 20 ML ONCE SQ
     Dates: start: 20050207, end: 20050207

REACTIONS (5)
  - AGITATION [None]
  - MALAISE [None]
  - POST PROCEDURAL COMPLICATION [None]
  - RESPIRATION ABNORMAL [None]
  - SOMNOLENCE [None]
